FAERS Safety Report 25190041 (Version 3)
Quarter: 2025Q3

REPORT INFORMATION
  Report Type: Report from Study
  Country: JP (occurrence: JP)
  Receive Date: 20250411
  Receipt Date: 20250821
  Transmission Date: 20251021
  Serious: Yes (Hospitalization)
  Sender: ROCHE
  Company Number: JP-CHUGAI-2024044283

PATIENT
  Age: 67 Year
  Sex: Male
  Weight: 56 kg

DRUGS (8)
  1. PIASKY [Suspect]
     Active Substance: CROVALIMAB-AKKZ
     Indication: Paroxysmal nocturnal haemoglobinuria
     Route: 058
     Dates: start: 20240823, end: 20250207
  2. PIASKY [Suspect]
     Active Substance: CROVALIMAB-AKKZ
     Route: 058
     Dates: start: 202503
  3. CARVEDILOL [Concomitant]
     Active Substance: CARVEDILOL
     Route: 065
  4. TAMSULOSIN HYDROCHLORIDE [Concomitant]
     Active Substance: TAMSULOSIN HYDROCHLORIDE
     Route: 065
  5. METHENOLONE ACETATE [Concomitant]
     Active Substance: METHENOLONE ACETATE
     Route: 065
  6. MODERNA COVID-19 VACCINE [Concomitant]
     Active Substance: ELASOMERAN
     Indication: Infection prophylaxis
     Route: 065
     Dates: end: 20241030
  7. COMIRNATY [Concomitant]
     Indication: Infection prophylaxis
     Route: 065
     Dates: end: 20241030
  8. LOXOPROFEN SODIUM DIHYDRATE [Concomitant]
     Active Substance: LOXOPROFEN SODIUM DIHYDRATE
     Route: 065
     Dates: start: 20241018, end: 20241024

REACTIONS (3)
  - COVID-19 [Recovering/Resolving]
  - Infection susceptibility increased [Unknown]
  - Pyrexia [Unknown]

NARRATIVE: CASE EVENT DATE: 20250302
